FAERS Safety Report 8476365 (Version 4)
Quarter: 2012Q4

REPORT INFORMATION
  Report Type: 
  Country: US (occurrence: US)
  Receive Date: 20120326
  Receipt Date: 20121129
  Transmission Date: 20130627
  Serious: Yes (Hospitalization, Other)
  Sender: FDA-Public Use
  Company Number: US-PFIZER INC-2012073685

PATIENT
  Age: 50 Year
  Sex: Female

DRUGS (15)
  1. CELEBREX [Suspect]
     Dosage: 200 mg, Daily
     Route: 048
     Dates: end: 20120219
  2. LYRICA [Suspect]
     Dosage: 50 mg, 2x/day
     Route: 048
     Dates: end: 20120219
  3. TERIPARATIDE [Suspect]
     Indication: OSTEOPOROSIS
     Dosage: 20 ug, UNK
     Dates: start: 20110520
  4. TERIPARATIDE [Suspect]
     Dosage: 20 ug, UNK
     Dates: end: 201202
  5. NEXIUM [Suspect]
     Dosage: UNK
     Dates: end: 20120219
  6. SINGULAR [Suspect]
     Dosage: UNK
     Dates: end: 20120219
  7. ADVAIR DISKUS [Concomitant]
  8. CARAFATE [Concomitant]
  9. FAMCLCLOVLR [Concomitant]
  10. LEXAPRO [Concomitant]
  11. MILK OF MAGNESIA [Concomitant]
  12. MS CONTIN [Concomitant]
  13. XYZAL [Concomitant]
  14. MIRAPEX [Concomitant]
  15. POTASSIUM [Concomitant]

REACTIONS (20)
  - Malaise [Not Recovered/Not Resolved]
  - Keratitis [Unknown]
  - Pain [Not Recovered/Not Resolved]
  - Mental impairment [Unknown]
  - Eye disorder [Unknown]
  - Eye discharge [Unknown]
  - Visual impairment [Unknown]
  - Activities of daily living impaired [Not Recovered/Not Resolved]
  - Fatigue [Not Recovered/Not Resolved]
  - Retching [Not Recovered/Not Resolved]
  - Dizziness [Not Recovered/Not Resolved]
  - Arthralgia [Unknown]
  - Pain [Unknown]
  - Anxiety [Unknown]
  - Insomnia [Unknown]
  - Drug dose omission [Unknown]
  - Abdominal pain upper [Not Recovered/Not Resolved]
  - Diarrhoea [Not Recovered/Not Resolved]
  - Vomiting [Not Recovered/Not Resolved]
  - Nausea [Not Recovered/Not Resolved]
